FAERS Safety Report 24174857 (Version 1)
Quarter: 2024Q3

REPORT INFORMATION
  Report Type: Report from Study
  Country: CA (occurrence: CA)
  Receive Date: 20240805
  Receipt Date: 20240805
  Transmission Date: 20241017
  Serious: Yes (Other)
  Sender: CURRAX PHARMACEUTICALS
  Company Number: CA-BAUSCH-BL-2023-015704

PATIENT
  Sex: Female

DRUGS (4)
  1. CONTRAVE [Suspect]
     Active Substance: BUPROPION HYDROCHLORIDE\NALTREXONE HYDROCHLORIDE
     Indication: Weight control
     Dosage: 90/8 MG
     Route: 048
     Dates: start: 2023, end: 2023
  2. CONTRAVE [Suspect]
     Active Substance: BUPROPION HYDROCHLORIDE\NALTREXONE HYDROCHLORIDE
     Dosage: 90/8 MG, 1 AND 1 (2 TABS/DAY) (1 DOSAGE FORMS,1 IN 12 HR)
     Route: 048
     Dates: start: 202308, end: 2024
  3. CONTRAVE [Suspect]
     Active Substance: BUPROPION HYDROCHLORIDE\NALTREXONE HYDROCHLORIDE
     Dosage: 90/8 MG, 1 TAB DAILY
     Route: 048
     Dates: start: 202407
  4. VITAMIN D [Concomitant]
     Active Substance: VITAMIN D NOS
     Indication: Vitamin D decreased
     Dosage: 1 IN 1 D
     Route: 048

REACTIONS (16)
  - Optic nerve injury [Unknown]
  - Loss of consciousness [Unknown]
  - Head injury [Recovering/Resolving]
  - Loss of personal independence in daily activities [Unknown]
  - Concussion [Recovering/Resolving]
  - Fall [Unknown]
  - Illness [Recovering/Resolving]
  - Vomiting [Unknown]
  - Dehydration [Recovering/Resolving]
  - Stress [Unknown]
  - Therapeutic response unexpected [Unknown]
  - Intentional product misuse [Unknown]
  - Product dose omission issue [Unknown]
  - Product dose omission in error [Unknown]
  - Product use issue [Unknown]
  - Underdose [Unknown]

NARRATIVE: CASE EVENT DATE: 20230101
